FAERS Safety Report 8350640-2 (Version None)
Quarter: 2012Q2

REPORT INFORMATION
  Report Type: 
  Country: None (occurrence: None)
  Receive Date: 20120510
  Receipt Date: 20120503
  Transmission Date: 20120825
  Serious: Yes (Other)
  Sender: FDA-Public Use
  Company Number: SE-ALLERGAN-1206313US

PATIENT
  Age: 62 Year
  Sex: Male

DRUGS (3)
  1. ASPIRIN [Concomitant]
     Indication: MYOCARDIAL INFARCTION
  2. PLAVIX [Concomitant]
     Indication: PRODUCT USED FOR UNKNOWN INDICATION
  3. BOTULINUM TOXIN TYPE A [Suspect]
     Indication: PRODUCT USED FOR UNKNOWN INDICATION
     Dosage: 30 UNITS, SINGLE
     Dates: start: 20101203, end: 20101203

REACTIONS (2)
  - DRUG INEFFECTIVE [None]
  - FAECAL INCONTINENCE [None]
